FAERS Safety Report 7406390-X (Version None)
Quarter: 2011Q2

REPORT INFORMATION
  Report Type: 
  Country: None (occurrence: None)
  Receive Date: 20110411
  Receipt Date: 20110330
  Transmission Date: 20111010
  Serious: Yes (Other)
  Sender: FDA-Public Use
  Company Number: PHHY2011BR27350

PATIENT
  Sex: Male

DRUGS (1)
  1. DIOVAN AMLO FIX [Suspect]
     Dosage: 160/5 MG

REACTIONS (2)
  - GAIT DISTURBANCE [None]
  - CEREBROVASCULAR ACCIDENT [None]
